FAERS Safety Report 5206931-7 (Version None)
Quarter: 2007Q1

REPORT INFORMATION
  Report Type: 
  Country: None (occurrence: None)
  Receive Date: 20070105
  Receipt Date: 20070105
  Transmission Date: 20070707
  Serious: Yes (Hospitalization)
  Sender: FDA-Public Use
  Company Number: None

PATIENT
  Age: 52 Year
  Sex: Female

DRUGS (1)
  1. SOTALOL HYDROCHLORIDE [Suspect]
     Indication: ATRIAL FIBRILLATION
     Dosage: 80MG BID

REACTIONS (5)
  - BRADYCARDIA [None]
  - DRUG TOXICITY [None]
  - HYPOTENSION [None]
  - SHOCK [None]
  - TREATMENT NONCOMPLIANCE [None]
